FAERS Safety Report 9511692 (Version 1)
Quarter: 2013Q3

REPORT INFORMATION
  Report Type: Report from Study
  Country: CA (occurrence: CA)
  Receive Date: 20130910
  Receipt Date: 20130910
  Transmission Date: 20140515
  Serious: Yes (Hospitalization)
  Sender: FDA-Public Use
  Company Number: CA-ROCHE-1271631

PATIENT
  Age: 62 Year
  Sex: Female

DRUGS (4)
  1. XELODA [Suspect]
     Indication: BREAST CANCER
     Route: 048
     Dates: start: 201307
  2. DEXAMETHASONE [Concomitant]
  3. PMS-METOCLOPRAMIDE [Concomitant]
  4. TINZAPARIN [Concomitant]

REACTIONS (4)
  - Pleuritic pain [Unknown]
  - Vomiting [Unknown]
  - Pneumothorax [Recovering/Resolving]
  - Nausea [Not Recovered/Not Resolved]
